FAERS Safety Report 7531493-9 (Version None)
Quarter: 2011Q2

REPORT INFORMATION
  Report Type: 
  Country: None (occurrence: None)
  Receive Date: 20110531
  Receipt Date: 20110516
  Transmission Date: 20111010
  Serious: Yes (Congenital Anomaly)
  Sender: FDA-Public Use
  Company Number: DSM-2010-00202

PATIENT
  Age: 29 Year
  Sex: Female
  Weight: 83 kg

DRUGS (2)
  1. OLMESARTAN MEDOXOMIL [Suspect]
     Indication: HYPERTENSION
     Dosage: (10 MG),ORAL
     Route: 048
     Dates: start: 20040101
  2. ASPIRIN [Concomitant]

REACTIONS (4)
  - DRUG EXPOSURE DURING PREGNANCY [None]
  - OLIGOHYDRAMNIOS [None]
  - PREGNANCY [None]
  - ABORTION INDUCED [None]
